FAERS Safety Report 18044995 (Version 5)
Quarter: 2020Q4

REPORT INFORMATION
  Report Type: Report from Study
  Country: US (occurrence: US)
  Receive Date: 20200720
  Receipt Date: 20201124
  Transmission Date: 20210113
  Serious: Yes (Other)
  Sender: FDA-Public Use
  Company Number: US-PFIZER INC-2020274387

PATIENT
  Age: 49 Year
  Sex: Female

DRUGS (4)
  1. IBRANCE [Suspect]
     Active Substance: PALBOCICLIB
     Indication: BREAST CANCER FEMALE
     Dosage: 125 MG, CYCLIC (DAILY FOR 21 DAYS OF 28 DAY CYCLE)
     Route: 048
     Dates: start: 20200601, end: 20200627
  2. IBRANCE [Suspect]
     Active Substance: PALBOCICLIB
     Dosage: 100 MG, CYCLIC (DAILY FOR 21 DAYS OF 28 DAY CYCLE)
     Route: 048
     Dates: start: 20200714
  3. IBRANCE [Suspect]
     Active Substance: PALBOCICLIB
     Dosage: 100 MG, CYCLIC (100MG DAILY FOR 5 DAYS, THEN OFF FOR 2 DAYS FOR 21 DAYS OF 28 DAY CYCLE)
     Route: 048
     Dates: start: 20201109
  4. IBRANCE [Suspect]
     Active Substance: PALBOCICLIB
     Dosage: 100 MG, CYCLIC (100MG DAILY FOR 21 DAYS OF 28 DAY CYCLE)
     Route: 048
     Dates: start: 20200601, end: 20201108

REACTIONS (12)
  - Abdominal discomfort [Not Recovered/Not Resolved]
  - Dizziness [Unknown]
  - Dry mouth [Unknown]
  - Peripheral swelling [Unknown]
  - Leukopenia [Not Recovered/Not Resolved]
  - Abdominal distension [Unknown]
  - Anaemia [Unknown]
  - Neoplasm recurrence [Unknown]
  - Fatigue [Unknown]
  - Oropharyngeal pain [Unknown]
  - Myelosuppression [Recovered/Resolved]
  - Stomatitis [Unknown]

NARRATIVE: CASE EVENT DATE: 2020
